FAERS Safety Report 8996139 (Version 3)
Quarter: 2013Q2

REPORT INFORMATION
  Report Type: Report from Study
  Country: DE (occurrence: DE)
  Receive Date: 20130103
  Receipt Date: 20130524
  Transmission Date: 20140414
  Serious: Yes (Hospitalization)
  Sender: FDA-Public Use
  Company Number: DE-JNJFOC-20121212534

PATIENT
  Age: 10 Year
  Sex: Male
  Weight: 27.1 kg

DRUGS (4)
  1. REMICADE [Suspect]
     Indication: CROHN^S DISEASE
     Route: 042
     Dates: start: 20100528, end: 20110811
  2. ANAKINRA [Concomitant]
     Dates: start: 20120514
  3. 5-ASA [Concomitant]
     Route: 048
  4. HUMIRA [Concomitant]
     Dates: start: 20110826, end: 20111216

REACTIONS (1)
  - Pharyngitis [Recovered/Resolved]
